FAERS Safety Report 13699109 (Version 1)
Quarter: 2020Q3

REPORT INFORMATION
  Report Type: Report from Study
  Country: FR (occurrence: FR)
  Receive Date: 20170628
  Receipt Date: 20170628
  Transmission Date: 20201104
  Serious: Yes (Death, Hospitalization, Other)
  Sender: FDA-Public Use
  Company Number: FR-ASTRAZENECA-2016SE97366

PATIENT
  Age: 26369 Day
  Sex: Male

DRUGS (15)
  1. MEDI4736 [Suspect]
     Active Substance: DURVALUMAB
     Indication: NON-SMALL CELL LUNG CANCER
     Dosage: 1450.0MG ONCE/SINGLE ADMINISTRATION
     Route: 042
     Dates: start: 20160817, end: 20160817
  2. TREMELIMUMAB. [Suspect]
     Active Substance: TREMELIMUMAB
     Indication: NON-SMALL CELL LUNG CANCER
     Dosage: 72.0MG ONCE/SINGLE ADMINISTRATION
     Route: 042
     Dates: start: 20160610, end: 20160610
  3. OXYCODONE [Concomitant]
     Active Substance: OXYCODONE
     Indication: TUMOUR PAIN
     Route: 048
     Dates: start: 20160609
  4. TREMELIMUMAB. [Suspect]
     Active Substance: TREMELIMUMAB
     Indication: NON-SMALL CELL LUNG CANCER
     Dosage: 72.0MG ONCE/SINGLE ADMINISTRATION
     Route: 042
     Dates: start: 20160817, end: 20160817
  5. OXYCODONE [Concomitant]
     Active Substance: OXYCODONE
     Indication: TUMOUR PAIN
     Dosage: 5.0MG AS REQUIRED
     Route: 048
     Dates: start: 20160609
  6. MEDI4736 [Suspect]
     Active Substance: DURVALUMAB
     Indication: NON-SMALL CELL LUNG CANCER
     Dosage: 1450.0MG ONCE/SINGLE ADMINISTRATION
     Route: 042
     Dates: start: 20160610, end: 20160610
  7. PARACETAMOL [Concomitant]
     Active Substance: ACETAMINOPHEN
     Indication: TUMOUR PAIN
     Dosage: 1000.0MG AS REQUIRED
     Route: 048
  8. EUPANTOL [Concomitant]
     Active Substance: PANTOPRAZOLE SODIUM
     Indication: PAIN PROPHYLAXIS
     Route: 048
     Dates: start: 20160609
  9. BISOPROLOL [Concomitant]
     Active Substance: BISOPROLOL
     Indication: HYPERTENSION
     Route: 048
  10. SEROPLEX [Concomitant]
     Active Substance: ESCITALOPRAM OXALATE
     Indication: DEPRESSION
     Route: 048
     Dates: start: 20160613
  11. APIXABAN [Concomitant]
     Active Substance: APIXABAN
     Indication: THROMBOSIS PROPHYLAXIS
     Route: 048
     Dates: start: 20160609
  12. KETOPROFEN. [Concomitant]
     Active Substance: KETOPROFEN
     Indication: CANCER PAIN
     Route: 048
     Dates: start: 20160613
  13. PREDNISOLONE. [Concomitant]
     Active Substance: PREDNISOLONE
     Indication: CANCER PAIN
     Route: 048
     Dates: start: 20160613
  14. LYRICA [Concomitant]
     Active Substance: PREGABALIN
     Indication: CANCER PAIN
     Route: 048
     Dates: start: 20160613
  15. OXYCODONE [Concomitant]
     Active Substance: OXYCODONE
     Indication: TUMOUR PAIN
     Route: 048
     Dates: start: 20160609

REACTIONS (1)
  - Respiratory failure [Recovered/Resolved]

NARRATIVE: CASE EVENT DATE: 20160903
